FAERS Safety Report 17005061 (Version 1)
Quarter: 2019Q4

REPORT INFORMATION
  Report Type: Spontaneous
  Country: US (occurrence: US)
  Receive Date: 20191107
  Receipt Date: 20191107
  Transmission Date: 20200122
  Serious: No
  Sender: FDA-Public Use
  Company Number: US-JNJFOC-20191044688

PATIENT

DRUGS (3)
  1. XARELTO [Suspect]
     Active Substance: RIVAROXABAN
     Indication: PRODUCT USED FOR UNKNOWN INDICATION
     Route: 048
  2. XARELTO [Suspect]
     Active Substance: RIVAROXABAN
     Route: 048
  3. IBRANCE [Concomitant]
     Active Substance: PALBOCICLIB
     Dosage: FOR 21 DAYS
     Route: 048
     Dates: start: 20190601

REACTIONS (1)
  - Condition aggravated [Unknown]
